FAERS Safety Report 10019025 (Version 1)
Quarter: 2014Q1

REPORT INFORMATION
  Report Type: Spontaneous
  Country: MX (occurrence: MX)
  Receive Date: 20140318
  Receipt Date: 20140318
  Transmission Date: 20141002
  Serious: Yes (Other)
  Sender: FDA-Public Use
  Company Number: MX-JNJFOC-20140309757

PATIENT
  Age: 42 Year
  Sex: Female

DRUGS (5)
  1. PALEXIA [Suspect]
     Indication: METASTATIC PAIN
     Route: 048
  2. PALEXIA [Suspect]
     Indication: RADICULOPATHY
     Route: 048
  3. PALEXIA [Suspect]
     Indication: NECK PAIN
     Route: 048
  4. MORFIN [Concomitant]
     Indication: PRODUCT USED FOR UNKNOWN INDICATION
     Route: 065
  5. PREGABALIN [Concomitant]
     Indication: PRODUCT USED FOR UNKNOWN INDICATION
     Route: 065

REACTIONS (1)
  - Delirium [Unknown]
